FAERS Safety Report 11701035 (Version 4)
Quarter: 2016Q2

REPORT INFORMATION
  Report Type: Report from Study
  Country: US (occurrence: US)
  Receive Date: 20151105
  Receipt Date: 20160504
  Transmission Date: 20160815
  Serious: Yes (Death, Hospitalization, Other)
  Sender: FDA-Public Use
  Company Number: US-ASTELLAS-2015US040920

PATIENT
  Age: 58 Year
  Sex: Female

DRUGS (1)
  1. ERLOTINIB [Suspect]
     Active Substance: ERLOTINIB
     Indication: NON-SMALL CELL LUNG CANCER
     Route: 048
     Dates: start: 20150810

REACTIONS (7)
  - Pulmonary thrombosis [Unknown]
  - Confusional state [Unknown]
  - Oedema peripheral [Recovered/Resolved]
  - Dyspnoea [Unknown]
  - Acute respiratory failure [Fatal]
  - Blood alkaline phosphatase increased [Unknown]
  - Hyponatraemia [Unknown]

NARRATIVE: CASE EVENT DATE: 20150831
